FAERS Safety Report 7572299-4 (Version None)
Quarter: 2011Q2

REPORT INFORMATION
  Report Type: 
  Country: None (occurrence: None)
  Receive Date: 20110624
  Receipt Date: 20110616
  Transmission Date: 20111010
  Serious: Yes (Hospitalization)
  Sender: FDA-Public Use
  Company Number: PHHO2011US09749

PATIENT
  Sex: Male
  Weight: 86 kg

DRUGS (8)
  1. AMLODIPINE [Concomitant]
     Indication: HYPERTENSION
  2. CLONIDINE [Concomitant]
     Indication: HYPERTENSION
  3. CERTICAN [Suspect]
     Indication: RENAL TRANSPLANT
     Dosage: 1.5 MG, BID
     Route: 048
     Dates: start: 20110526, end: 20110605
  4. ASPIRIN [Suspect]
  5. INSULIN [Concomitant]
     Indication: DIABETES MELLITUS
  6. METOPROLOL TARTRATE [Concomitant]
     Indication: HYPERTENSION
  7. CRESTOR [Concomitant]
     Indication: HYPERLIPIDAEMIA
  8. CALCIUM ACETATE [Concomitant]
     Indication: RENAL FAILURE CHRONIC

REACTIONS (3)
  - HAEMATOMA [None]
  - ARTERIAL DISORDER [None]
  - RENAL HAEMORRHAGE [None]
